FAERS Safety Report 5746811-1 (Version None)
Quarter: 2008Q2

REPORT INFORMATION
  Report Type: 
  Country: None (occurrence: None)
  Receive Date: 20080522
  Receipt Date: 20080512
  Transmission Date: 20081010
  Serious: Yes (Other)
  Sender: FDA-Public Use
  Company Number: JP-PFIZER INC-2008041153

PATIENT
  Age: 63 Year
  Sex: Male

DRUGS (1)
  1. XALATAN [Suspect]
     Indication: GLAUCOMA
     Route: 031
     Dates: start: 20071201, end: 20080410

REACTIONS (4)
  - CARDIAC HYPERTROPHY [None]
  - DYSPHONIA [None]
  - DYSPNOEA [None]
  - PALPITATIONS [None]
